FAERS Safety Report 8881022 (Version 1)
Quarter: 2012Q4

REPORT INFORMATION
  Report Type: 
  Country: GB (occurrence: GB)
  Receive Date: 20121101
  Receipt Date: 20121101
  Transmission Date: 20130627
  Serious: Yes (Death, Life-Threatening)
  Sender: FDA-Public Use
  Company Number: GB-WATSON-2012-18415

PATIENT
  Age: 89 Year
  Sex: Male

DRUGS (5)
  1. RISPERIDONE (UNKNOWN) [Suspect]
     Indication: BEHAVIOURAL AND PSYCHIATRIC SYMPTOMS OF DEMENTIA
     Dosage: 1 mg, bid
     Route: 048
     Dates: start: 20120906, end: 20120907
  2. DONEPEZIL [Concomitant]
     Indication: DEMENTIA ALZHEIMER^S TYPE
     Dosage: 10 mg, daily
     Route: 048
     Dates: start: 201208, end: 20120920
  3. MESALAZINE [Concomitant]
     Indication: COLITIS ULCERATIVE
     Dosage: 400 mg, tid started on admission, ongoing
     Route: 048
  4. ZOPICLONE [Concomitant]
     Indication: INSOMNIA
     Dosage: 7.5 mg, daily at night. Ongoing
     Route: 048
     Dates: start: 20120906
  5. LORAZEPAM [Concomitant]
     Indication: AGITATION
     Dosage: 0.5-1mg when required. Max 4mg. Started on admission, ongoing.
     Route: 048

REACTIONS (3)
  - Unresponsive to stimuli [Recovered/Resolved]
  - Electrocardiogram QT prolonged [Recovered/Resolved]
  - Coma scale abnormal [Recovered/Resolved]
